FAERS Safety Report 8408475-8 (Version None)
Quarter: 2012Q2

REPORT INFORMATION
  Report Type: 
  Country: None (occurrence: None)
  Receive Date: 20120604
  Receipt Date: 20120529
  Transmission Date: 20120825
  Serious: Yes (Hospitalization)
  Sender: FDA-Public Use
  Company Number: JP-ROCHE-1056023

PATIENT
  Sex: Female
  Weight: 60 kg

DRUGS (5)
  1. OMALIZUMAB [Suspect]
     Indication: ASTHMA
     Route: 058
     Dates: start: 20101001
  2. THEOPHYLLINE [Concomitant]
     Dates: start: 20100401, end: 20100729
  3. SYMBICORT [Concomitant]
     Dates: start: 20100401
  4. PREDNISOLONE [Concomitant]
     Dates: start: 20100401
  5. OMALIZUMAB [Suspect]
     Route: 058
     Dates: start: 20120101, end: 20120421

REACTIONS (1)
  - ASTHMA [None]
